FAERS Safety Report 5989017-3 (Version None)
Quarter: 2008Q4

REPORT INFORMATION
  Report Type: 
  Country: None (occurrence: None)
  Receive Date: 20081204
  Receipt Date: 20081124
  Transmission Date: 20090506
  Serious: Yes (Other)
  Sender: FDA-Public Use
  Company Number: 2008AP003241

PATIENT
  Sex: Female

DRUGS (1)
  1. HYDROCHLOROTHIAZIDE/TRIAMTERENE (HYDROCHLOROTHIAZIDE/TRIAMTERENE) [Suspect]
     Indication: HYPERTENSION
     Dosage: 0.5 DF;QD ; PO
     Route: 048
     Dates: start: 20010305, end: 20081020

REACTIONS (2)
  - ALOPECIA [None]
  - CUTANEOUS LUPUS ERYTHEMATOSUS [None]
